FAERS Safety Report 6204516-7 (Version None)
Quarter: 2009Q2

REPORT INFORMATION
  Report Type: 
  Country: None (occurrence: None)
  Receive Date: 20090522
  Receipt Date: 20090513
  Transmission Date: 20091009
  Serious: Yes (Life-Threatening, Hospitalization)
  Sender: FDA-Public Use
  Company Number: WAES 0712USA08076

PATIENT
  Age: 69 Year
  Sex: Male
  Weight: 110.6777 kg

DRUGS (7)
  1. DECADRON [Suspect]
     Dosage: PO
     Route: 048
  2. CAP VORINOSTAT UNK [Suspect]
     Indication: NON-SMALL CELL LUNG CANCER
     Dosage: 400 MG/DAILY/PO; 400 MG/DAILY/PO
     Route: 048
     Dates: start: 20071127, end: 20071212
  3. CAP VORINOSTAT UNK [Suspect]
     Indication: NON-SMALL CELL LUNG CANCER
     Dosage: 400 MG/DAILY/PO; 400 MG/DAILY/PO
     Route: 048
     Dates: start: 20070808
  4. PACLITAXEL [Suspect]
     Indication: NON-SMALL CELL LUNG CANCER
     Dosage: 200 MG/M[2] IV; 200 MG/M[2] IV
     Route: 042
     Dates: start: 20070810, end: 20070810
  5. PACLITAXEL [Suspect]
     Indication: NON-SMALL CELL LUNG CANCER
     Dosage: 200 MG/M[2] IV; 200 MG/M[2] IV
     Route: 042
     Dates: start: 20071129, end: 20071129
  6. CARBOPLATIN [Suspect]
     Indication: NON-SMALL CELL LUNG CANCER
     Dosage: IV
     Route: 042
     Dates: start: 20070810, end: 20070810
  7. CARBOPLATIN [Suspect]
     Indication: NON-SMALL CELL LUNG CANCER
     Dosage: IV
     Route: 042
     Dates: start: 20071129, end: 20071129

REACTIONS (6)
  - BODY TEMPERATURE INCREASED [None]
  - GAS GANGRENE [None]
  - HYPERGLYCAEMIA [None]
  - HYPERHIDROSIS [None]
  - MALAISE [None]
  - SKIN ULCER [None]
